FAERS Safety Report 22103432 (Version 1)
Quarter: 2023Q1

REPORT INFORMATION
  Report Type: Spontaneous
  Country: US (occurrence: US)
  Receive Date: 20230316
  Receipt Date: 20230316
  Transmission Date: 20230418
  Serious: Yes (Disabling)
  Sender: FDA-Public Use
  Company Number: US-PFIZER INC-202300104740

PATIENT
  Age: 24 Year
  Sex: Female

DRUGS (1)
  1. DEPO-PROVERA [Suspect]
     Active Substance: MEDROXYPROGESTERONE ACETATE
     Indication: Contraception
     Dosage: UNK
     Dates: start: 20220925, end: 20230309

REACTIONS (2)
  - Injection site pain [Recovered/Resolved with Sequelae]
  - Injection site scar [Recovered/Resolved with Sequelae]

NARRATIVE: CASE EVENT DATE: 20220925
